FAERS Safety Report 6720267-4 (Version None)
Quarter: 2010Q2

REPORT INFORMATION
  Report Type: 
  Country: None (occurrence: None)
  Receive Date: 20100511
  Receipt Date: 20100505
  Transmission Date: 20101027
  Serious: Yes (Hospitalization)
  Sender: FDA-Public Use
  Company Number: FR-PFIZER INC-2006046814

PATIENT
  Age: 57 Year
  Sex: Male

DRUGS (3)
  1. SUNITINIB MALATE [Suspect]
     Indication: RENAL CELL CARCINOMA
     Dosage: 50 MG, 1X/DAY
     Route: 048
     Dates: start: 20060110, end: 20060320
  2. ACETAMINOPHEN AND CODEINE PHOSPHATE [Concomitant]
     Dosage: UNK
     Route: 048
     Dates: start: 20060220
  3. SOLUPRED [Concomitant]
     Dosage: UNK
     Route: 048
     Dates: start: 20060220, end: 20060320

REACTIONS (2)
  - MYOCARDIAL INFARCTION [None]
  - PLEURAL EFFUSION [None]
